FAERS Safety Report 9748436 (Version 2)
Quarter: 2014Q1

REPORT INFORMATION
  Report Type: Report from Study
  Country: US (occurrence: US)
  Receive Date: 20131212
  Receipt Date: 20140106
  Transmission Date: 20141002
  Serious: Yes (Other)
  Sender: FDA-Public Use
  Company Number: US-ASTRAZENECA-2013SE88945

PATIENT
  Age: 49 Year
  Sex: Female
  Weight: 67.6 kg

DRUGS (7)
  1. NEXIUM [Suspect]
     Indication: GASTROOESOPHAGEAL REFLUX DISEASE
     Route: 048
  2. NEXIUM [Suspect]
     Indication: DYSPEPSIA
     Route: 048
  3. NEXIUM [Suspect]
     Indication: GASTROOESOPHAGEAL REFLUX DISEASE
     Route: 048
  4. ANASTROZOLE [Suspect]
     Indication: ANTIOESTROGEN THERAPY
     Dosage: UNKNOWN DAILY
     Route: 048
     Dates: start: 201308
  5. BENICAR [Concomitant]
     Indication: BLOOD PRESSURE
     Dosage: 40/25 MG DAILY
     Route: 048
     Dates: start: 2005
  6. PERCOCET [Concomitant]
     Indication: PAIN
     Route: 048
     Dates: start: 201310
  7. PERCOCET [Concomitant]
     Indication: SLEEP DISORDER
     Route: 048
     Dates: start: 201310

REACTIONS (9)
  - Breast cancer female [Unknown]
  - Breast cancer recurrent [Unknown]
  - Metastases to lymph nodes [Unknown]
  - Cancer in remission [Unknown]
  - Weight decreased [Unknown]
  - Bone disorder [Unknown]
  - Activities of daily living impaired [Unknown]
  - Drug dose omission [None]
  - Intentional drug misuse [Unknown]
